FAERS Safety Report 12227824 (Version 1)
Quarter: 2016Q2

REPORT INFORMATION
  Report Type: Report from Study
  Country: CA (occurrence: CA)
  Receive Date: 20160401
  Receipt Date: 20160401
  Transmission Date: 20160815
  Serious: Yes (Hospitalization)
  Sender: FDA-Public Use
  Company Number: CA-ROCHE-1719421

PATIENT
  Sex: Female

DRUGS (11)
  1. AVASTIN [Suspect]
     Active Substance: BEVACIZUMAB
     Indication: OVARIAN CANCER
     Route: 042
     Dates: start: 20151214
  2. LORAZEPAM. [Concomitant]
     Active Substance: LORAZEPAM
  3. CELEBREX [Concomitant]
     Active Substance: CELECOXIB
  4. OLANZAPINE. [Concomitant]
     Active Substance: OLANZAPINE
  5. PROCHLORAZINE [Concomitant]
  6. CLONAZEPAM. [Concomitant]
     Active Substance: CLONAZEPAM
  7. ONDANSETRON [Concomitant]
     Active Substance: ONDANSETRON
  8. APIXABAN [Concomitant]
     Active Substance: APIXABAN
     Dosage: CLINICAL TRIAL (50/50 CHANCE OF PLACEBO DRUG)
     Route: 065
  9. VALTREX [Concomitant]
     Active Substance: VALACYCLOVIR HYDROCHLORIDE
  10. ZOPICLONE [Concomitant]
     Active Substance: ZOPICLONE
  11. DEXAMETHAZONE [Concomitant]
     Active Substance: DEXAMETHASONE

REACTIONS (2)
  - Adhesion [Unknown]
  - Intestinal obstruction [Unknown]
